FAERS Safety Report 18790996 (Version 1)
Quarter: 2021Q1

REPORT INFORMATION
  Report Type: Spontaneous
  Country: US (occurrence: US)
  Receive Date: 20210126
  Receipt Date: 20210126
  Transmission Date: 20210419
  Serious: No
  Sender: FDA-Public Use
  Company Number: US-BIOMARINAP-US-2020-134062

PATIENT
  Sex: Female
  Weight: 32.61 kg

DRUGS (2)
  1. KUVAN [Suspect]
     Active Substance: SAPROPTERIN DIHYDROCHLORIDE
     Indication: PHENYLKETONURIA
     Dosage: 600 MILLIGRAM, QD
     Route: 048
  2. PHENEXPECT [Concomitant]
     Indication: PRODUCT USED FOR UNKNOWN INDICATION
     Dosage: 30G?410 POWDER

REACTIONS (3)
  - Sinusitis [Unknown]
  - Amino acid level abnormal [Unknown]
  - Attention deficit hyperactivity disorder [Unknown]
